FAERS Safety Report 17550415 (Version 1)
Quarter: 2020Q1

REPORT INFORMATION
  Report Type: Spontaneous
  Country: US (occurrence: US)
  Receive Date: 20200317
  Receipt Date: 20200317
  Transmission Date: 20200409
  Serious: Yes (Other)
  Sender: FDA-Public Use
  Company Number: None

PATIENT
  Age: 66 Year
  Weight: 58.5 kg

DRUGS (4)
  1. XYZAL [Concomitant]
     Active Substance: LEVOCETIRIZINE DIHYDROCHLORIDE
  2. LOW DOSE ASPIRIN [Concomitant]
     Active Substance: ASPIRIN
  3. ATENOLOL. [Concomitant]
     Active Substance: ATENOLOL
  4. VALACYCLOVIR TABLETS, USP 500 MG [Suspect]
     Active Substance: VALACYCLOVIR HYDROCHLORIDE
     Indication: HERPES VIRUS INFECTION
     Dosage: ?          QUANTITY:1 TABLET(S);?
     Route: 048
     Dates: start: 20200315, end: 20200317

REACTIONS (4)
  - Abdominal pain upper [None]
  - Nausea [None]
  - Product substitution issue [None]
  - Headache [None]

NARRATIVE: CASE EVENT DATE: 20200316
